FAERS Safety Report 23836003 (Version 3)
Quarter: 2024Q3

REPORT INFORMATION
  Report Type: Spontaneous
  Country: US (occurrence: US)
  Receive Date: 20240509
  Receipt Date: 20240918
  Transmission Date: 20241017
  Serious: No
  Sender: BRISTOL MYERS SQUIBB
  Company Number: US-BRISTOL-MYERS SQUIBB COMPANY-2024-072295

PATIENT
  Age: 83 Year
  Sex: Female

DRUGS (4)
  1. POMALYST [Suspect]
     Active Substance: POMALIDOMIDE
     Indication: Plasma cell myeloma
     Route: 048
  2. POMALYST [Suspect]
     Active Substance: POMALIDOMIDE
     Route: 048
     Dates: start: 20240305
  3. POMALYST [Suspect]
     Active Substance: POMALIDOMIDE
     Dosage: FREQUENCY:21
  4. POMALYST [Suspect]
     Active Substance: POMALIDOMIDE

REACTIONS (1)
  - White blood cell count decreased [Unknown]
